FAERS Safety Report 7272993-9 (Version None)
Quarter: 2011Q1

REPORT INFORMATION
  Report Type: 
  Country: None (occurrence: None)
  Receive Date: 20110203
  Receipt Date: 20110127
  Transmission Date: 20110831
  Serious: Yes (Other)
  Sender: FDA-Public Use
  Company Number: A0911296A

PATIENT
  Age: 46 Year
  Sex: Female

DRUGS (2)
  1. CAPECITABINE [Suspect]
     Dosage: 2000MGM2 SEE DOSAGE TEXT
     Dates: start: 20070801
  2. TYKERB [Suspect]
     Dosage: 1250MG PER DAY
     Route: 048
     Dates: start: 20070801

REACTIONS (13)
  - SPEECH DISORDER [None]
  - DISEASE PROGRESSION [None]
  - PLEURAL FIBROSIS [None]
  - SKIN TOXICITY [None]
  - METASTATIC NEOPLASM [None]
  - CONFUSIONAL STATE [None]
  - PERFORMANCE STATUS DECREASED [None]
  - NAUSEA [None]
  - COMPUTERISED TOMOGRAM [None]
  - RADIOTHERAPY [None]
  - MUCOSAL INFLAMMATION [None]
  - LUNG DISORDER [None]
  - NUCLEAR MAGNETIC RESONANCE IMAGING [None]
